FAERS Safety Report 6512511-3 (Version None)
Quarter: 2009Q4

REPORT INFORMATION
  Report Type: 
  Country: None (occurrence: None)
  Receive Date: 20091222
  Receipt Date: 20091214
  Transmission Date: 20100525
  Serious: Yes (Hospitalization, Other)
  Sender: FDA-Public Use
  Company Number: US-ELI_LILLY_AND_COMPANY-US200912003583

PATIENT
  Sex: Female

DRUGS (1)
  1. FORTEO [Suspect]
     Dosage: 20 UG, DAILY (1/D)
     Dates: start: 20090601

REACTIONS (6)
  - HEAD INJURY [None]
  - LOSS OF CONSCIOUSNESS [None]
  - SPINAL FRACTURE [None]
  - SYNCOPE [None]
  - ULCER [None]
  - WEIGHT DECREASED [None]
